FAERS Safety Report 13292824 (Version 17)
Quarter: 2022Q1

REPORT INFORMATION
  Report Type: Spontaneous
  Country: FR (occurrence: None)
  Receive Date: 20170303
  Receipt Date: 20220124
  Transmission Date: 20220423
  Serious: Yes (Death, Hospitalization, Other)
  Sender: FDA-Public Use
  Company Number: 2017SE23099

PATIENT
  Age: 71 Year
  Sex: Male
  Weight: 113.4 kg

DRUGS (71)
  1. SYMBICORT [Suspect]
     Active Substance: BUDESONIDE\FORMOTEROL FUMARATE DIHYDRATE
     Indication: Product use in unapproved indication
     Dosage: 400/12 1 INHALATION PER DAY
     Route: 055
     Dates: start: 20161220, end: 20170119
  2. BUDESONIDE [Suspect]
     Active Substance: BUDESONIDE
     Indication: Product used for unknown indication
     Route: 055
     Dates: start: 20161220, end: 20170119
  3. CUBICIN [Suspect]
     Active Substance: DAPTOMYCIN
     Indication: Product use in unapproved indication
     Route: 042
     Dates: start: 20170110, end: 20170201
  4. CUBICIN [Suspect]
     Active Substance: DAPTOMYCIN
     Indication: Chest scan
     Route: 042
     Dates: start: 20170110, end: 20170201
  5. CUBICIN [Suspect]
     Active Substance: DAPTOMYCIN
     Indication: Skin infection
     Route: 042
     Dates: start: 20170110, end: 20170201
  6. VANCOMYCIN HYDROCHLORIDE [Suspect]
     Active Substance: VANCOMYCIN HYDROCHLORIDE
     Indication: Product use in unapproved indication
     Route: 065
  7. VANCOMYCIN HYDROCHLORIDE [Suspect]
     Active Substance: VANCOMYCIN HYDROCHLORIDE
     Indication: Skin infection
     Route: 065
  8. VANCOMYCIN HYDROCHLORIDE [Suspect]
     Active Substance: VANCOMYCIN HYDROCHLORIDE
     Indication: Chest scan
     Route: 065
  9. PIPERACILLIN AND TAZOBACTAM [Suspect]
     Active Substance: PIPERACILLIN SODIUM\TAZOBACTAM SODIUM
     Indication: Skin infection
     Route: 042
     Dates: start: 20161204, end: 20170130
  10. PIPERACILLIN AND TAZOBACTAM [Suspect]
     Active Substance: PIPERACILLIN SODIUM\TAZOBACTAM SODIUM
     Indication: Chest scan
     Route: 042
     Dates: start: 20161204, end: 20170130
  11. PRIMPERAN [Suspect]
     Active Substance: METOCLOPRAMIDE HYDROCHLORIDE
     Indication: Product use in unapproved indication
     Dosage: 10 MG, TID (3 DF, TID (1 DF TID))
     Route: 048
     Dates: start: 20161224, end: 20170119
  12. PRIMPERAN [Suspect]
     Active Substance: METOCLOPRAMIDE HYDROCHLORIDE
     Indication: Chest scan
     Dosage: 10 MG, TID (3 DF, TID (1 DF TID))
     Route: 048
     Dates: start: 20161224, end: 20170119
  13. PRIMPERAN [Suspect]
     Active Substance: METOCLOPRAMIDE HYDROCHLORIDE
     Indication: Skin infection
     Dosage: 10 MG, TID (3 DF, TID (1 DF TID))
     Route: 048
     Dates: start: 20161224, end: 20170119
  14. PRIMPERAN [Suspect]
     Active Substance: METOCLOPRAMIDE HYDROCHLORIDE
     Indication: Product use in unapproved indication
     Route: 048
     Dates: start: 20161224, end: 20170119
  15. PRIMPERAN [Suspect]
     Active Substance: METOCLOPRAMIDE HYDROCHLORIDE
     Indication: Chest scan
     Route: 048
     Dates: start: 20161224, end: 20170119
  16. PRIMPERAN [Suspect]
     Active Substance: METOCLOPRAMIDE HYDROCHLORIDE
     Indication: Skin infection
     Route: 048
     Dates: start: 20161224, end: 20170119
  17. PANTOPRAZOLE [Suspect]
     Active Substance: PANTOPRAZOLE
     Indication: Product use in unapproved indication
     Route: 042
     Dates: start: 20161225, end: 20170119
  18. PANTOPRAZOLE [Suspect]
     Active Substance: PANTOPRAZOLE
     Indication: Chest scan
     Route: 042
     Dates: start: 20161225, end: 20170119
  19. PANTOPRAZOLE [Suspect]
     Active Substance: PANTOPRAZOLE
     Indication: Skin infection
     Route: 042
     Dates: start: 20161225, end: 20170119
  20. LINEZOLID [Suspect]
     Active Substance: LINEZOLID
     Indication: Skin infection
     Route: 048
     Dates: start: 20161222, end: 20170110
  21. LINEZOLID [Suspect]
     Active Substance: LINEZOLID
     Indication: Chest scan
     Route: 048
     Dates: start: 20161222, end: 20170110
  22. LINEZOLID [Suspect]
     Active Substance: LINEZOLID
     Indication: Skin infection
     Dosage: LINEZOLIDE ARROW
     Route: 048
     Dates: start: 20161222, end: 20170110
  23. LINEZOLID [Suspect]
     Active Substance: LINEZOLID
     Indication: Chest scan
     Dosage: LINEZOLIDE ARROW
     Route: 048
     Dates: start: 20161222, end: 20170110
  24. DEXTROMETHORPHAN HYDROBROMIDE [Suspect]
     Active Substance: DEXTROMETHORPHAN HYDROBROMIDE
     Indication: Product use in unapproved indication
     Route: 042
     Dates: start: 20161202, end: 20170119
  25. ACETAMINOPHEN\TRAMADOL HYDROCHLORIDE [Suspect]
     Active Substance: ACETAMINOPHEN\TRAMADOL HYDROCHLORIDE
     Indication: Product use in unapproved indication
     Dosage: 37.5/325 MG, 2 TABLETS FOUR TIMES A DAY
     Route: 048
     Dates: start: 20161201, end: 20170119
  26. ACETAMINOPHEN\TRAMADOL HYDROCHLORIDE [Suspect]
     Active Substance: ACETAMINOPHEN\TRAMADOL HYDROCHLORIDE
     Indication: Chest scan
     Dosage: 37.5/325 MG, 2 TABLETS FOUR TIMES A DAY
     Route: 048
     Dates: start: 20161201, end: 20170119
  27. ACETAMINOPHEN\TRAMADOL HYDROCHLORIDE [Suspect]
     Active Substance: ACETAMINOPHEN\TRAMADOL HYDROCHLORIDE
     Indication: Skin infection
     Dosage: 37.5/325 MG, 2 TABLETS FOUR TIMES A DAY
     Route: 048
     Dates: start: 20161201, end: 20170119
  28. ACETAMINOPHEN\TRAMADOL HYDROCHLORIDE [Suspect]
     Active Substance: ACETAMINOPHEN\TRAMADOL HYDROCHLORIDE
     Indication: Product use in unapproved indication
     Route: 048
     Dates: start: 20161209, end: 20170119
  29. QUESTRAN [Suspect]
     Active Substance: CHOLESTYRAMINE
     Indication: Product use in unapproved indication
     Route: 048
     Dates: start: 20161216, end: 20170119
  30. QUESTRAN [Suspect]
     Active Substance: CHOLESTYRAMINE
     Indication: Skin infection
     Route: 048
     Dates: start: 20161216, end: 20170119
  31. QUESTRAN [Suspect]
     Active Substance: CHOLESTYRAMINE
     Indication: Chest scan
     Route: 048
     Dates: start: 20161216, end: 20170119
  32. QUESTRAN [Suspect]
     Active Substance: CHOLESTYRAMINE
     Indication: Product use in unapproved indication
     Route: 048
     Dates: start: 20161216, end: 20170119
  33. QUESTRAN [Suspect]
     Active Substance: CHOLESTYRAMINE
     Indication: Skin infection
     Route: 048
     Dates: start: 20161216, end: 20170119
  34. QUESTRAN [Suspect]
     Active Substance: CHOLESTYRAMINE
     Indication: Chest scan
     Route: 048
     Dates: start: 20161216, end: 20170119
  35. ULTRAVIST [Suspect]
     Active Substance: IOPROMIDE
     Indication: Chest scan
     Dosage: 370 MG OF IODINE PER ML
     Route: 042
     Dates: start: 20170116, end: 20170116
  36. ULTRAVIST [Suspect]
     Active Substance: IOPROMIDE
     Indication: Skin infection
     Dosage: 370 MG OF IODINE PER ML
     Route: 042
     Dates: start: 20170116, end: 20170116
  37. RIFADIN [Suspect]
     Active Substance: RIFAMPIN
     Indication: Product used for unknown indication
     Route: 065
  38. RIFADIN [Suspect]
     Active Substance: RIFAMPIN
     Indication: Chest scan
     Route: 065
  39. RIFADIN [Suspect]
     Active Substance: RIFAMPIN
     Indication: Skin infection
     Route: 065
  40. NEFOPAM [Suspect]
     Active Substance: NEFOPAM
     Indication: Product used for unknown indication
     Route: 042
     Dates: start: 20161202, end: 20170119
  41. NEFOPAM [Suspect]
     Active Substance: NEFOPAM
     Indication: Chest scan
     Route: 042
     Dates: start: 20161202, end: 20170119
  42. NEFOPAM [Suspect]
     Active Substance: NEFOPAM
     Indication: Skin infection
     Route: 042
     Dates: start: 20161202, end: 20170119
  43. METOCLOPRAMIDE HYDROCHLORIDE [Suspect]
     Active Substance: METOCLOPRAMIDE HYDROCHLORIDE
     Indication: Skin infection
     Route: 065
  44. METOCLOPRAMIDE HYDROCHLORIDE [Suspect]
     Active Substance: METOCLOPRAMIDE HYDROCHLORIDE
     Indication: Chest scan
     Route: 065
  45. CHOLESTYRAMINE [Suspect]
     Active Substance: CHOLESTYRAMINE
     Indication: Chest scan
     Route: 065
  46. CHOLESTYRAMINE [Suspect]
     Active Substance: CHOLESTYRAMINE
     Indication: Skin infection
     Route: 065
  47. RACECADOTRIL [Suspect]
     Active Substance: RACECADOTRIL
     Indication: Product used for unknown indication
     Route: 065
     Dates: start: 20161209, end: 20170119
  48. RACECADOTRIL [Suspect]
     Active Substance: RACECADOTRIL
     Indication: Chest scan
     Route: 065
     Dates: start: 20161209, end: 20170119
  49. RACECADOTRIL [Suspect]
     Active Substance: RACECADOTRIL
     Indication: Skin infection
     Route: 065
     Dates: start: 20161209, end: 20170119
  50. RACECADOTRIL [Suspect]
     Active Substance: RACECADOTRIL
     Indication: Product used for unknown indication
     Route: 065
     Dates: start: 20161209, end: 20170119
  51. RACECADOTRIL [Suspect]
     Active Substance: RACECADOTRIL
     Indication: Chest scan
     Route: 065
     Dates: start: 20161209, end: 20170119
  52. RACECADOTRIL [Suspect]
     Active Substance: RACECADOTRIL
     Indication: Skin infection
     Route: 065
     Dates: start: 20161209, end: 20170119
  53. DAPTOMYCIN [Suspect]
     Active Substance: DAPTOMYCIN
     Indication: Chest scan
     Route: 065
     Dates: start: 20170110
  54. DAPTOMYCIN [Suspect]
     Active Substance: DAPTOMYCIN
     Indication: Skin infection
     Route: 065
     Dates: start: 20170110
  55. DAPTOMYCIN [Suspect]
     Active Substance: DAPTOMYCIN
     Indication: Chest scan
     Route: 065
     Dates: start: 20170110, end: 20170201
  56. DAPTOMYCIN [Suspect]
     Active Substance: DAPTOMYCIN
     Indication: Skin infection
     Route: 065
     Dates: start: 20170110, end: 20170201
  57. RIFAMPIN [Suspect]
     Active Substance: RIFAMPIN
     Indication: Chest scan
  58. RIFAMPIN [Suspect]
     Active Substance: RIFAMPIN
     Indication: Skin infection
  59. POTASSIUM CHLORIDE [Concomitant]
     Active Substance: POTASSIUM CHLORIDE
     Indication: Product use in unapproved indication
     Route: 065
  60. DUPHALAC [Concomitant]
     Active Substance: LACTULOSE
     Indication: Product use in unapproved indication
     Route: 065
  61. LOPERAMIDE [Concomitant]
     Active Substance: LOPERAMIDE
     Indication: Product use in unapproved indication
  62. KARDEGIC [Concomitant]
     Active Substance: ASPIRIN DL-LYSINE
     Indication: Product use in unapproved indication
     Route: 065
  63. POTASSIUM CHLORIDE [Concomitant]
     Active Substance: POTASSIUM CHLORIDE
  64. FUROSEMIDE [Concomitant]
     Active Substance: FUROSEMIDE
     Indication: Product use in unapproved indication
     Route: 065
  65. LOVENOX [Concomitant]
     Active Substance: ENOXAPARIN SODIUM
     Indication: Product used for unknown indication
     Route: 065
     Dates: start: 20170114, end: 20170114
  66. INSULIN HUMAN [Concomitant]
     Active Substance: INSULIN HUMAN
     Indication: Product use in unapproved indication
     Route: 065
  67. POLARAMINE [Concomitant]
     Active Substance: DEXCHLORPHENIRAMINE MALEATE
     Indication: Product used for unknown indication
     Route: 065
  68. LANTUS [Concomitant]
     Active Substance: INSULIN GLARGINE
     Indication: Product use in unapproved indication
     Route: 065
  69. FUROSEMIDE [Concomitant]
     Active Substance: FUROSEMIDE
  70. LOPERAMIDE [Concomitant]
     Active Substance: LOPERAMIDE
  71. INSULIN HUMAN [Concomitant]
     Active Substance: INSULIN HUMAN

REACTIONS (18)
  - Dyspnoea [Fatal]
  - Diffuse alveolar damage [Fatal]
  - Death [Fatal]
  - Eosinophilia [Fatal]
  - Hyperammonaemia [Fatal]
  - Thrombocytopenia [Fatal]
  - Hepatic encephalopathy [Fatal]
  - Glomerular filtration rate decreased [Fatal]
  - Rectal haemorrhage [Fatal]
  - Generalised oedema [Fatal]
  - Eosinophilic pneumonia [Fatal]
  - Alveolar lung disease [Fatal]
  - Pulmonary interstitial emphysema syndrome [Fatal]
  - Acute kidney injury [Fatal]
  - Sepsis [Fatal]
  - Eczema [Fatal]
  - Restlessness [Fatal]
  - Rash maculo-papular [Fatal]

NARRATIVE: CASE EVENT DATE: 20161227
